FAERS Safety Report 6013782-2 (Version None)
Quarter: 2008Q4

REPORT INFORMATION
  Report Type: 
  Country: None (occurrence: None)
  Receive Date: 20081218
  Receipt Date: 20081218
  Transmission Date: 20090506
  Serious: Yes (Death, Life-Threatening, Hospitalization)
  Sender: FDA-Public Use
  Company Number: None

PATIENT
  Age: 68 Year
  Sex: Female
  Weight: 82 kg

DRUGS (4)
  1. ELOXATIN [Suspect]
     Indication: COLON CANCER STAGE III
     Dosage: IV DRIP
     Route: 041
     Dates: start: 20080730, end: 20080730
  2. ELOXATIN [Suspect]
     Indication: COLON CANCER STAGE III
     Dosage: IV DRIP
     Route: 041
     Dates: start: 20080826, end: 20080826
  3. LEUCOVORIN CALCIUM [Concomitant]
  4. FLUOROURACIL [Concomitant]

REACTIONS (12)
  - CATHETER SITE RELATED REACTION [None]
  - CONDITION AGGRAVATED [None]
  - DEEP VEIN THROMBOSIS [None]
  - DIFFUSE ALVEOLAR DAMAGE [None]
  - DISEASE PROGRESSION [None]
  - HAEMODYNAMIC INSTABILITY [None]
  - PULMONARY OEDEMA [None]
  - PULMONARY TOXICITY [None]
  - RENAL FAILURE ACUTE [None]
  - RESPIRATORY FAILURE [None]
  - RESPIRATORY MONILIASIS [None]
  - THROMBOCYTOPENIA [None]
